FAERS Safety Report 8235520 (Version 4)
Quarter: 2016Q2

REPORT INFORMATION
  Report Type: Spontaneous
  Country: US (occurrence: US)
  Receive Date: 20111108
  Receipt Date: 20160519
  Transmission Date: 20160815
  Serious: Yes (Life-Threatening, Hospitalization, Other)
  Sender: FDA-Public Use
  Company Number: PHEH2011US07910

PATIENT
  Sex: Female

DRUGS (11)
  1. MONTELUKAST [Concomitant]
     Active Substance: MONTELUKAST SODIUM
     Indication: PRODUCT USED FOR UNKNOWN INDICATION
     Route: 065
  2. DIPHENOXYLATE [Concomitant]
     Active Substance: DIPHENOXYLATE
     Indication: PRODUCT USED FOR UNKNOWN INDICATION
     Route: 065
  3. DIOVAN [Suspect]
     Active Substance: VALSARTAN
     Dosage: 0.5 MG, BID
     Route: 048
     Dates: start: 2009
  4. OMEPRAZOLE. [Concomitant]
     Active Substance: OMEPRAZOLE
     Indication: PRODUCT USED FOR UNKNOWN INDICATION
     Route: 065
  5. DIOVAN [Suspect]
     Active Substance: VALSARTAN
     Indication: HYPERTENSION
     Dosage: 80 MG, BID
     Route: 048
     Dates: start: 2009
  6. AMITRIPTYLINE [Concomitant]
     Active Substance: AMITRIPTYLINE
     Indication: PRODUCT USED FOR UNKNOWN INDICATION
     Route: 065
  7. SIMVASTATIN. [Concomitant]
     Active Substance: SIMVASTATIN
     Indication: PRODUCT USED FOR UNKNOWN INDICATION
     Route: 065
  8. SPIRONOLACTONE. [Concomitant]
     Active Substance: SPIRONOLACTONE
     Indication: PRODUCT USED FOR UNKNOWN INDICATION
     Route: 065
  9. FUROSEMIDE. [Suspect]
     Active Substance: FUROSEMIDE
     Indication: FLUID RETENTION
     Dosage: 120 MG, QD
     Route: 065
  10. DICYCLOMINE [Concomitant]
     Active Substance: DICYCLOMINE HYDROCHLORIDE
     Indication: PRODUCT USED FOR UNKNOWN INDICATION
     Route: 065
  11. METOPROLOL. [Concomitant]
     Active Substance: METOPROLOL
     Indication: PRODUCT USED FOR UNKNOWN INDICATION
     Route: 065

REACTIONS (31)
  - Pulmonary oedema [Unknown]
  - Drug dependence [Unknown]
  - Feeding disorder [Unknown]
  - Spinal disorder [Unknown]
  - Pain [Unknown]
  - Vomiting [Unknown]
  - Drug prescribing error [Unknown]
  - Fluid retention [Unknown]
  - Myelopathy [Unknown]
  - Scar [Unknown]
  - Wrong technique in product usage process [Unknown]
  - Intervertebral disc protrusion [Unknown]
  - Dyspepsia [Unknown]
  - Asphyxia [Unknown]
  - Cardiac failure [Unknown]
  - Peripheral swelling [Unknown]
  - Swelling face [Unknown]
  - Road traffic accident [Unknown]
  - Back disorder [Unknown]
  - Fibromyalgia [Unknown]
  - Fatigue [Unknown]
  - Extrasystoles [Unknown]
  - Cardiomegaly [Unknown]
  - Dyspnoea [Unknown]
  - Feeling abnormal [Unknown]
  - Memory impairment [Unknown]
  - Decreased appetite [Unknown]
  - Abdominal discomfort [Unknown]
  - Poor peripheral circulation [Unknown]
  - Musculoskeletal discomfort [Unknown]
  - Dizziness [Unknown]
